FAERS Safety Report 17340276 (Version 1)
Quarter: 2020Q1

REPORT INFORMATION
  Report Type: Spontaneous
  Country: DK (occurrence: DK)
  Receive Date: 20200129
  Receipt Date: 20200129
  Transmission Date: 20200409
  Serious: Yes (Life-Threatening)
  Sender: FDA-Public Use
  Company Number: DK-BRISTOL-MYERS SQUIBB COMPANY-BMS-2020-006640

PATIENT
  Age: 79 Year
  Sex: Male
  Weight: 80 kg

DRUGS (1)
  1. OPDIVO [Suspect]
     Active Substance: NIVOLUMAB
     Indication: MALIGNANT MELANOMA
     Dosage: UNK
     Route: 042
     Dates: start: 20190729

REACTIONS (7)
  - Fatigue [Recovering/Resolving]
  - Cortisol decreased [Recovering/Resolving]
  - Pain in extremity [Recovering/Resolving]
  - Decreased appetite [Recovering/Resolving]
  - Hypopituitarism [Not Recovered/Not Resolved]
  - Asthenia [Recovering/Resolving]
  - Body temperature fluctuation [Recovering/Resolving]

NARRATIVE: CASE EVENT DATE: 201912
